FAERS Safety Report 6229873-7 (Version None)
Quarter: 2009Q2

REPORT INFORMATION
  Report Type: 
  Country: None (occurrence: None)
  Receive Date: 20090615
  Receipt Date: 20090602
  Transmission Date: 20091009
  Serious: Yes (Hospitalization)
  Sender: FDA-Public Use
  Company Number: DE-ELI_LILLY_AND_COMPANY-DE200906000448

PATIENT
  Sex: Female

DRUGS (5)
  1. CYMBALTA [Suspect]
     Dosage: 30 D/F, UNKNOWN
     Route: 048
  2. ALPRAZOLAM [Concomitant]
     Dosage: 0.25 D/F, UNKNOWN
     Route: 065
  3. AMANTADINE HCL [Concomitant]
     Dosage: 100 D/F, UNKNOWN
     Route: 065
  4. DOXEPIN HCL [Concomitant]
     Dosage: 10 D/F, UNKNOWN
     Route: 065
  5. SULPIRID [Concomitant]
     Dosage: UNK, UNKNOWN
     Route: 065

REACTIONS (3)
  - DISTURBANCE IN ATTENTION [None]
  - OVERDOSE [None]
  - SURGERY [None]
